FAERS Safety Report 17891084 (Version 1)
Quarter: 2020Q2

REPORT INFORMATION
  Report Type: Spontaneous
  Country: PL (occurrence: PL)
  Receive Date: 20200612
  Receipt Date: 20200612
  Transmission Date: 20200714
  Serious: Yes (Other)
  Sender: FDA-Public Use
  Company Number: PL-PFIZER INC-2020224811

PATIENT
  Age: 57 Year
  Sex: Female

DRUGS (5)
  1. KISQALI [Suspect]
     Active Substance: RIBOCICLIB
     Dosage: 600 MG, CYCLIC (1-21 DAYS, ONCE A DAY, IN 28 DAY CYCLE)
     Route: 048
     Dates: start: 201812
  2. ZOLEDRONIC ACID [Suspect]
     Active Substance: ZOLEDRONIC ACID
     Dosage: UNK
     Route: 065
     Dates: start: 201812
  3. ETRUZIL [Concomitant]
     Active Substance: LETROZOLE
     Dosage: 2.5 MG
     Route: 048
  4. LETROZOLE. [Concomitant]
     Active Substance: LETROZOLE
     Dosage: UNK
     Route: 065
     Dates: start: 201812
  5. KISQALI [Suspect]
     Active Substance: RIBOCICLIB
     Dosage: 400 MG, ONCE A DAY
     Route: 065

REACTIONS (9)
  - Aspartate aminotransferase increased [Recovered/Resolved]
  - Red blood cell count decreased [Unknown]
  - Haematocrit decreased [Unknown]
  - Blood calcium decreased [Unknown]
  - Restlessness [Unknown]
  - Alanine aminotransferase increased [Recovered/Resolved]
  - Asthenia [Unknown]
  - Neutrophil count decreased [Unknown]
  - General physical health deterioration [Unknown]
